FAERS Safety Report 6569265-4 (Version None)
Quarter: 2010Q1

REPORT INFORMATION
  Report Type: 
  Country: None (occurrence: None)
  Receive Date: 20100201
  Receipt Date: 20100201
  Transmission Date: 20100710
  Serious: Yes (Other)
  Sender: FDA-Public Use
  Company Number: None

PATIENT
  Age: 36 Year
  Sex: Female
  Weight: 53.5244 kg

DRUGS (1)
  1. TETRACYCLINE [Suspect]
     Indication: SKIN EXFOLIATION
     Dosage: 500 MG 2X/DAY FIRST WK; 500 MG 1X/DAY REM FOR 1 M
     Dates: start: 20100109, end: 20100129

REACTIONS (1)
  - TOOTH DISCOLOURATION [None]
